FAERS Safety Report 25018221 (Version 2)
Quarter: 2025Q1

REPORT INFORMATION
  Report Type: Report from Study
  Country: US (occurrence: US)
  Receive Date: 20250227
  Receipt Date: 20250304
  Transmission Date: 20250409
  Serious: Yes (Other)
  Sender: ABBVIE
  Company Number: US-ABBVIE-6116357

PATIENT
  Sex: Female
  Weight: 68 kg

DRUGS (1)
  1. SKYRIZI [Suspect]
     Active Substance: RISANKIZUMAB-RZAA
     Indication: Crohn^s disease
     Route: 058
     Dates: start: 202407

REACTIONS (7)
  - Abortion spontaneous [Unknown]
  - Maternal exposure during pregnancy [Unknown]
  - IgA nephropathy [Not Recovered/Not Resolved]
  - Nausea [Not Recovered/Not Resolved]
  - Abortion induced [Unknown]
  - Live birth [Unknown]
  - Multiple pregnancy [Unknown]

NARRATIVE: CASE EVENT DATE: 20241227
